FAERS Safety Report 6025931-0 (Version None)
Quarter: 2009Q1

REPORT INFORMATION
  Report Type: 
  Country: None (occurrence: None)
  Receive Date: 20090102
  Receipt Date: 20081223
  Transmission Date: 20090719
  Serious: Yes (Hospitalization)
  Sender: FDA-Public Use
  Company Number: GB-ROCHE-604881

PATIENT
  Sex: Female
  Weight: 96.6 kg

DRUGS (11)
  1. ORLISTAT [Suspect]
     Indication: OBESITY
     Route: 048
     Dates: start: 20080617, end: 20080918
  2. BUPRENORPHINE HCL [Concomitant]
     Indication: BACK PAIN
     Route: 062
  3. UNSPECIFIED DRUG [Concomitant]
     Indication: ASTHMA
     Dosage: DRUG REPORTED AS EASIBREEZE, 200 MCG 2 PUFFS TAKEN TWICE DAILY.
     Route: 055
  4. SYMBICORT [Concomitant]
     Indication: ASTHMA
     Dosage: 2 PUFFS TAKEN TWICE DAILY.
     Route: 055
  5. MONTELUKAST SODIUM [Concomitant]
     Indication: ASTHMA
     Route: 048
  6. TEMGESIC [Concomitant]
     Indication: PAIN
     Route: 048
  7. TRAZODONE HCL [Concomitant]
     Dosage: DRUG REPORTED AS TIAZODONE HYDROCHLORIDE.
     Route: 048
  8. UNSPECIFIED DRUG [Concomitant]
     Dosage: DRUG REPORTED AS DIATHYLAMINE.
     Route: 048
  9. GABAPENTIN [Concomitant]
     Route: 048
  10. NULYTELY [Concomitant]
     Indication: CONSTIPATION
     Dosage: GIVEN WHEN NEEDED.
     Route: 048
  11. BUMETANIDE [Concomitant]
     Route: 048

REACTIONS (1)
  - INTESTINAL STRANGULATION [None]
